FAERS Safety Report 7270455-6 (Version None)
Quarter: 2011Q1

REPORT INFORMATION
  Report Type: 
  Country: None (occurrence: None)
  Receive Date: 20110202
  Receipt Date: 20110125
  Transmission Date: 20110831
  Serious: Yes (Other)
  Sender: FDA-Public Use
  Company Number: US-US-EMD SERONO, INC.-7004415

PATIENT
  Sex: Female

DRUGS (2)
  1. UNSPECIFIED MEDICATIONS - TOO MANY TO LIST [Concomitant]
  2. REBIF [Suspect]
     Indication: MULTIPLE SCLEROSIS
     Dates: start: 20020101, end: 20030101

REACTIONS (1)
  - HEPATIC CIRRHOSIS [None]
